FAERS Safety Report 8649215 (Version 3)
Quarter: 2012Q4

REPORT INFORMATION
  Report Type: 
  Country: US (occurrence: US)
  Receive Date: 20120705
  Receipt Date: 20121122
  Transmission Date: 20130627
  Serious: No
  Sender: FDA-Public Use
  Company Number: US-BIOGENIDEC-2012BI023319

PATIENT
  Sex: Female

DRUGS (2)
  1. TYSABRI [Suspect]
     Indication: MULTIPLE SCLEROSIS
     Route: 042
     Dates: start: 20080711
  2. AVONEX [Concomitant]
     Route: 030
     Dates: start: 20030920

REACTIONS (5)
  - Vertigo [Not Recovered/Not Resolved]
  - Hypoaesthesia [Not Recovered/Not Resolved]
  - Thinking abnormal [Unknown]
  - Asthenia [Unknown]
  - Fatigue [Unknown]
